FAERS Safety Report 4840205-9 (Version None)
Quarter: 2005Q4

REPORT INFORMATION
  Report Type: 
  Country: None (occurrence: None)
  Receive Date: 20051125
  Receipt Date: 20051109
  Transmission Date: 20060501
  Serious: Yes (Hospitalization)
  Sender: FDA-Public Use
  Company Number: 2005BL006717

PATIENT
  Age: 78 Year
  Sex: Male
  Weight: 52.1637 kg

DRUGS (3)
  1. TIMOLOL MALEATE [Suspect]
     Indication: GLAUCOMA
     Dosage: 4 DROP; TWICE A DAY; OPHTHALMIC
     Route: 047
     Dates: start: 20010101, end: 20050401
  2. LAMICTAL [Concomitant]
  3. LEVOTHYROXINE SODIUM [Concomitant]

REACTIONS (6)
  - ASPIRATION [None]
  - DYSPHAGIA [None]
  - POST PROCEDURAL HAEMORRHAGE [None]
  - SUTURE RELATED COMPLICATION [None]
  - SYNCOPE [None]
  - WEIGHT DECREASED [None]
